FAERS Safety Report 8481338-8 (Version None)
Quarter: 2012Q3

REPORT INFORMATION
  Report Type: 
  Country: None (occurrence: None)
  Receive Date: 20120702
  Receipt Date: 20120622
  Transmission Date: 20120928
  Serious: Yes (Life-Threatening, Hospitalization, Disabling, Other)
  Sender: FDA-Public Use
  Company Number: US-JNJFOC-20120401083

PATIENT
  Sex: Female
  Weight: 64.41 kg

DRUGS (8)
  1. REMICADE [Suspect]
     Indication: COLITIS ULCERATIVE
     Route: 042
     Dates: start: 20110101
  2. ESTRADIOL [Concomitant]
     Dosage: 0.2-35MG TO MCG TABLET
     Route: 065
  3. HYDROCODONE BITARTRATE [Concomitant]
     Dosage: 10-325MG
     Route: 065
  4. CREON [Concomitant]
     Route: 065
  5. PANTOPRAZOLE SODIUM [Concomitant]
     Route: 065
  6. MERCAPTOPURINE [Suspect]
     Indication: COLITIS ULCERATIVE
     Route: 048
  7. ASACOL [Concomitant]
     Route: 065
  8. NORTRIPTYLINE HCL [Concomitant]
     Route: 065

REACTIONS (7)
  - PANCREATITIS ACUTE [None]
  - DRUG INEFFECTIVE [None]
  - BREAST TENDERNESS [None]
  - PSEUDOCYST [None]
  - BREAST DISCHARGE [None]
  - ANAL FISSURE [None]
  - WEIGHT DECREASED [None]
